FAERS Safety Report 12411474 (Version 1)
Quarter: 2016Q2

REPORT INFORMATION
  Report Type: Spontaneous
  Country: US (occurrence: None)
  Receive Date: 20160526
  Receipt Date: 20160526
  Transmission Date: 20160815
  Serious: Yes (Hospitalization)
  Sender: FDA-Public Use
  Company Number: None

PATIENT
  Age: 83 Year
  Sex: Male
  Weight: 83.46 kg

DRUGS (9)
  1. XARELTO [Concomitant]
     Active Substance: RIVAROXABAN
  2. HYDROCODONE [Concomitant]
     Active Substance: HYDROCODONE
  3. METOPROLOL MYLAN [Suspect]
     Active Substance: METOPROLOL
     Indication: ATRIAL FIBRILLATION
     Dosage: 25 MG, 2 MAX PER 24 HRS, AS NEEDED, MOUTH
     Route: 048
     Dates: start: 20160302, end: 20160302
  4. ATORVASTATIN [Concomitant]
     Active Substance: ATORVASTATIN
  5. SOTALOL. [Concomitant]
     Active Substance: SOTALOL
  6. COQ10 [Concomitant]
     Active Substance: UBIDECARENONE
  7. VITAMIN C [Concomitant]
     Active Substance: ASCORBIC ACID
  8. SPIRONOLACTONE. [Concomitant]
     Active Substance: SPIRONOLACTONE
  9. MULTI VITAMIN [Concomitant]
     Active Substance: VITAMINS

REACTIONS (2)
  - Atrial fibrillation [None]
  - Syncope [None]

NARRATIVE: CASE EVENT DATE: 20160303
